FAERS Safety Report 13008442 (Version 2)
Quarter: 2016Q4

REPORT INFORMATION
  Report Type: Report from Study
  Country: None (occurrence: IT)
  Receive Date: 20161208
  Receipt Date: 20161209
  Transmission Date: 20170207
  Serious: Yes (Death, Hospitalization)
  Sender: FDA-Public Use
  Company Number: IT-ABBVIE-16K-083-1801723-00

PATIENT
  Sex: Female
  Weight: 60 kg

DRUGS (1)
  1. DUODOPA [Suspect]
     Active Substance: CARBIDOPA\LEVODOPA
     Indication: PARKINSON^S DISEASE
     Dosage: MD 4 +3, CR 4, ED 3
     Route: 050
     Dates: start: 20120604, end: 20161115

REACTIONS (2)
  - Gastrointestinal fistula [Fatal]
  - Bezoar [Fatal]
